FAERS Safety Report 16760614 (Version 1)
Quarter: 2019Q3

REPORT INFORMATION
  Report Type: Spontaneous
  Country: US (occurrence: US)
  Receive Date: 20190830
  Receipt Date: 20190830
  Transmission Date: 20191005
  Serious: Yes (Other)
  Sender: FDA-Public Use
  Company Number: US-ASTRAZENECA-2007BM09806

PATIENT
  Age: 22150 Day
  Sex: Female

DRUGS (3)
  1. EXENATIDE. [Concomitant]
     Active Substance: EXENATIDE
  2. BYETTA [Suspect]
     Active Substance: EXENATIDE
     Indication: TYPE 2 DIABETES MELLITUS
     Route: 058
     Dates: start: 20070615
  3. TOUJEO [Concomitant]
     Active Substance: INSULIN GLARGINE
     Indication: TYPE 2 DIABETES MELLITUS
     Dosage: 26 UNIT DAILY
     Route: 058

REACTIONS (8)
  - Anaemia [Unknown]
  - Nausea [Not Recovered/Not Resolved]
  - Decreased appetite [Not Recovered/Not Resolved]
  - Ulcer haemorrhage [Unknown]
  - Product dose omission [Unknown]
  - Early satiety [Not Recovered/Not Resolved]
  - Pancreatitis [Unknown]
  - Malaise [Unknown]

NARRATIVE: CASE EVENT DATE: 20070616
